FAERS Safety Report 7570857-4 (Version None)
Quarter: 2011Q2

REPORT INFORMATION
  Report Type: 
  Country: None (occurrence: None)
  Receive Date: 20110624
  Receipt Date: 20110606
  Transmission Date: 20111010
  Serious: Yes (Hospitalization)
  Sender: FDA-Public Use
  Company Number: US-B.I. PHARMACEUTICALS,INC./RIDGEFIELD-2011-BP-01041BP

PATIENT
  Sex: Male

DRUGS (15)
  1. MULTI-VITAMIN [Concomitant]
     Indication: VITAMIN SUPPLEMENTATION
     Route: 048
  2. PRADAXA [Suspect]
     Dosage: 300 MG
     Route: 048
     Dates: start: 20110604, end: 20110606
  3. NITROGLYCERIN [Concomitant]
     Indication: CHEST PAIN
     Route: 060
     Dates: start: 20091201
  4. AMIODARONE HCL [Concomitant]
     Indication: HEART RATE IRREGULAR
     Dosage: 200 MG
     Route: 048
     Dates: start: 20091201
  5. AMIODARONE HCL [Concomitant]
     Indication: ATRIAL FIBRILLATION
  6. OXYGEN [Concomitant]
     Indication: DYSPNOEA
     Dosage: 2 ML
     Route: 045
     Dates: start: 20091201
  7. CALCIUM/VITAMIN D [Concomitant]
     Indication: SUPPLEMENTATION THERAPY
     Route: 048
  8. METOPROLOL SUCCINATE EXTENDED RELEASE [Concomitant]
     Indication: HYPERTENSION
     Dosage: 12.5 MG
     Route: 048
     Dates: start: 20091201
  9. DUONEB [Concomitant]
     Indication: PNEUMONIA
     Dosage: 9 ML
     Route: 055
  10. LISINOPRIL [Concomitant]
     Indication: HYPERTENSION
     Dosage: 10 MG
     Route: 048
     Dates: start: 20091201
  11. PRADAXA [Suspect]
     Indication: ATRIAL FIBRILLATION
     Dosage: 300 MG
     Route: 048
     Dates: start: 20110101, end: 20110528
  12. IPRATROPIUM BROMIDE AND ALBUTEROL [Concomitant]
     Indication: CHRONIC OBSTRUCTIVE PULMONARY DISEASE
     Dates: start: 20110101
  13. POTASSIUM CHLORIDE [Concomitant]
     Indication: SUPPLEMENTATION THERAPY
     Dosage: 20 MEQ
     Route: 048
  14. LASIX [Concomitant]
     Indication: HYPERTENSION
     Dosage: 40 MG
     Route: 048
  15. LASIX [Concomitant]
     Indication: SUPPLEMENTATION THERAPY

REACTIONS (5)
  - DIARRHOEA [None]
  - HAEMORRHAGE [None]
  - MALAISE [None]
  - LIP HAEMORRHAGE [None]
  - DIVERTICULITIS INTESTINAL HAEMORRHAGIC [None]
